FAERS Safety Report 8734532 (Version 2)
Quarter: 2012Q4

REPORT INFORMATION
  Report Type: 
  Country: MX (occurrence: MX)
  Receive Date: 20120821
  Receipt Date: 20120829
  Transmission Date: 20130627
  Serious: Yes (Other)
  Sender: FDA-Public Use
  Company Number: MX-WATSON-2012-14356

PATIENT
  Age: 65 Year
  Sex: Female

DRUGS (2)
  1. CLARITHROMYCIN (UNKNOWN) [Suspect]
     Indication: PEPTIC ULCER
     Dosage: 500 mg, bid
     Route: 065
  2. OMEPRAZOLE (UNKNOWN) [Suspect]
     Indication: HELICOBACTER INFECTION
     Dosage: 20 mg, bid
     Route: 065

REACTIONS (1)
  - Mania [Recovered/Resolved]
